FAERS Safety Report 8475627-0 (Version None)
Quarter: 2012Q2

REPORT INFORMATION
  Report Type: 
  Country: None (occurrence: None)
  Receive Date: 20120628
  Receipt Date: 20120619
  Transmission Date: 20120825
  Serious: Yes (Other)
  Sender: FDA-Public Use
  Company Number: IE-ASTRAZENECA-2012SE41615

PATIENT
  Sex: Female

DRUGS (2)
  1. CRESTOR [Suspect]
     Route: 048
  2. ATORVASTATIN [Concomitant]

REACTIONS (3)
  - MYALGIA [None]
  - SUICIDAL IDEATION [None]
  - PSYCHOTIC DISORDER [None]
